FAERS Safety Report 20003484 (Version 1)
Quarter: 2021Q4

REPORT INFORMATION
  Report Type: Spontaneous
  Country: US (occurrence: US)
  Receive Date: 20211028
  Receipt Date: 20211028
  Transmission Date: 20220303
  Serious: Yes (Other)
  Sender: FDA-Public Use
  Company Number: US-ALVOGEN-2021-ALVOGEN-117685

PATIENT
  Age: 40 Year
  Sex: Female

DRUGS (2)
  1. CLINDAMYCIN [Suspect]
     Active Substance: CLINDAMYCIN
     Indication: Product used for unknown indication
     Dosage: DOSE: UNKNOWN, THERAPY DATE: UNKNOWN, THERAPY DURATION: UNKNOWN
     Route: 042
  2. ADALIMUMAB [Suspect]
     Active Substance: ADALIMUMAB
     Indication: Hidradenitis
     Dosage: DOSE: UNKNOWN, THERAPY DATES: UNKNOWN, THERAPY DURATION: UNKNOWN
     Route: 065

REACTIONS (6)
  - Clostridium difficile infection [Unknown]
  - Vulval cancer [Unknown]
  - Crohn^s disease [Unknown]
  - Irritability [Unknown]
  - Post procedural infection [Unknown]
  - Hidradenitis [Unknown]
